FAERS Safety Report 7466829-0 (Version None)
Quarter: 2011Q2

REPORT INFORMATION
  Report Type: 
  Country: None (occurrence: None)
  Receive Date: 20110509
  Receipt Date: 20100907
  Transmission Date: 20111010
  Serious: Yes (Hospitalization)
  Sender: FDA-Public Use
  Company Number: US-ALEXION-A201001094

PATIENT
  Sex: Female

DRUGS (4)
  1. SOLIRIS [Suspect]
     Indication: PAROXYSMAL NOCTURNAL HAEMOGLOBINURIA
     Dosage: 600 MG, QW
     Route: 042
     Dates: start: 20090608, end: 20090629
  2. FOLIC ACID [Concomitant]
     Indication: IRON DEFICIENCY
     Dosage: 1 MG, QD
     Route: 048
  3. MULTI-VITAMINS [Concomitant]
     Dosage: UNK
     Route: 048
  4. SOLIRIS [Suspect]
     Dosage: 900 MG, Q2W
     Route: 042
     Dates: start: 20090706, end: 20100521

REACTIONS (5)
  - DYSPNOEA [None]
  - FATIGUE [None]
  - CHEST PAIN [None]
  - PALPITATIONS [None]
  - HAEMOGLOBIN DECREASED [None]
